FAERS Safety Report 23278389 (Version 2)
Quarter: 2025Q1

REPORT INFORMATION
  Report Type: Spontaneous
  Country: US (occurrence: US)
  Receive Date: 20231208
  Receipt Date: 20250123
  Transmission Date: 20250409
  Serious: Yes (Other)
  Sender: PFIZER
  Company Number: US-PFIZER INC-PV202300197907

PATIENT
  Age: 73 Year
  Sex: Female

DRUGS (4)
  1. IBRANCE [Suspect]
     Active Substance: PALBOCICLIB
     Indication: Breast cancer female
     Route: 048
     Dates: start: 20230207, end: 20230307
  2. IBRANCE [Suspect]
     Active Substance: PALBOCICLIB
     Indication: Hormone receptor positive breast cancer
  3. ANASTROZOLE [Concomitant]
     Active Substance: ANASTROZOLE
     Dates: start: 20230206
  4. LIPITOR [Concomitant]
     Active Substance: ATORVASTATIN CALCIUM
     Dosage: TAKE 1 TABLET (10 MG TOTAL) BY MOUTH DAILY FOR 120 DAYS
     Route: 048

REACTIONS (1)
  - Neutropenia [Unknown]
